FAERS Safety Report 10064965 (Version 1)
Quarter: 2014Q2

REPORT INFORMATION
  Report Type: Spontaneous
  Country: US (occurrence: None)
  Receive Date: 20140404
  Receipt Date: 20140404
  Transmission Date: 20141212
  Serious: Yes (Hospitalization)
  Sender: FDA-Public Use
  Company Number: UTC-046587

PATIENT
  Age: 58 Year
  Sex: Female
  Weight: 99.77 kg

DRUGS (3)
  1. REMODULIN [Suspect]
     Indication: PULMONARY ARTERIOPATHY
     Dosage: UG/KG (0.018 UG/KG) 1 IN 1 MIN)
     Route: 041
     Dates: start: 20120811
  2. REVATIO (SILDENAFIL CITRATE) (SILDENAFIL CITRATE) [Concomitant]
  3. WARFARIN [Concomitant]

REACTIONS (1)
  - Anaemia [None]
